FAERS Safety Report 12926505 (Version 1)
Quarter: 2016Q4

REPORT INFORMATION
  Report Type: Spontaneous
  Country: US (occurrence: US)
  Receive Date: 20161109
  Receipt Date: 20161109
  Transmission Date: 20170207
  Serious: Yes (Other)
  Sender: FDA-Public Use
  Company Number: US-MEDA-2016110008

PATIENT
  Sex: Female

DRUGS (4)
  1. FELBAMATE. [Suspect]
     Active Substance: FELBAMATE
     Indication: GENERALISED TONIC-CLONIC SEIZURE
     Route: 048
     Dates: start: 201610
  2. FELBAMATE. [Suspect]
     Active Substance: FELBAMATE
     Indication: GENERALISED TONIC-CLONIC SEIZURE
     Route: 048
     Dates: end: 201610
  3. FELBATOL [Suspect]
     Active Substance: FELBAMATE
     Indication: GENERALISED TONIC-CLONIC SEIZURE
     Route: 048
     Dates: end: 201610
  4. FELBATOL [Suspect]
     Active Substance: FELBAMATE
     Indication: GENERALISED TONIC-CLONIC SEIZURE
     Route: 048

REACTIONS (3)
  - Generalised tonic-clonic seizure [Unknown]
  - Off label use [Unknown]
  - Drug ineffective for unapproved indication [Unknown]

NARRATIVE: CASE EVENT DATE: 201610
